FAERS Safety Report 14259321 (Version 1)
Quarter: 2017Q4

REPORT INFORMATION
  Report Type: Spontaneous
  Country: JP (occurrence: JP)
  Receive Date: 20171207
  Receipt Date: 20171207
  Transmission Date: 20180321
  Serious: Yes (Other)
  Sender: FDA-Public Use
  Company Number: JP-GLAXOSMITHKLINE-JP2017JPN161831

PATIENT
  Age: 68 Year
  Sex: Female

DRUGS (4)
  1. EFFEXOR XR [Concomitant]
     Active Substance: VENLAFAXINE HYDROCHLORIDE
     Dosage: UNK
     Dates: start: 20171017, end: 20171018
  2. LAMICTAL [Suspect]
     Active Substance: LAMOTRIGINE
     Indication: SCHIZOPHRENIA
  3. LAMICTAL [Suspect]
     Active Substance: LAMOTRIGINE
     Indication: MENTAL DISORDER DUE TO A GENERAL MEDICAL CONDITION
     Dosage: UNK
     Route: 048
     Dates: start: 20170620
  4. LEVOTOMIN [Concomitant]
     Active Substance: LEVOMEPROMAZINE
     Dosage: 5 MG, QD

REACTIONS (5)
  - Hyperammonaemia [Recovering/Resolving]
  - Hypomania [Unknown]
  - Altered state of consciousness [Recovered/Resolved]
  - Sedation complication [Unknown]
  - Depressed level of consciousness [Unknown]

NARRATIVE: CASE EVENT DATE: 20171017
